FAERS Safety Report 10629573 (Version 1)
Quarter: 2014Q4

REPORT INFORMATION
  Report Type: Spontaneous
  Country: US (occurrence: US)
  Receive Date: 20141205
  Receipt Date: 20141205
  Transmission Date: 20150529
  Serious: Yes (Other)
  Sender: FDA-Public Use
  Company Number: US-BRISTOL-MYERS SQUIBB COMPANY-21349832

PATIENT
  Age: 23 Year
  Sex: Male

DRUGS (2)
  1. ABILIFY MAINTENA [Suspect]
     Active Substance: ARIPIPRAZOLE
     Indication: SCHIZOPHRENIA
     Route: 030
     Dates: start: 201407
  2. ABILIFY [Suspect]
     Active Substance: ARIPIPRAZOLE
     Indication: SCHIZOPHRENIA
     Route: 048
     Dates: start: 2014, end: 2014

REACTIONS (6)
  - Mydriasis [Unknown]
  - Dry eye [Unknown]
  - Disturbance in social behaviour [Unknown]
  - Aggression [Unknown]
  - Photopsia [Unknown]
  - Hallucination, tactile [Unknown]

NARRATIVE: CASE EVENT DATE: 2014
